FAERS Safety Report 9721544 (Version 2)
Quarter: 2013Q4

REPORT INFORMATION
  Report Type: Spontaneous
  Country: GB (occurrence: GB)
  Receive Date: 20131130
  Receipt Date: 20131204
  Transmission Date: 20140711
  Serious: Yes (Other)
  Sender: FDA-Public Use
  Company Number: PHFR2013GB006685

PATIENT
  Sex: Female

DRUGS (3)
  1. CLOZARIL [Suspect]
     Indication: SCHIZOPHRENIA
     Dosage: 900 MG,
     Route: 048
     Dates: start: 20051116
  2. CLOZARIL [Suspect]
     Dosage: 800 MG,
     Route: 048
  3. AMISULPRIDE [Suspect]
     Dosage: UNK

REACTIONS (4)
  - Depression [Unknown]
  - Hallucination [Unknown]
  - Electrocardiogram QT prolonged [Unknown]
  - Antipsychotic drug level increased [Unknown]
